FAERS Safety Report 5467688-8 (Version None)
Quarter: 2007Q3

REPORT INFORMATION
  Report Type: 
  Country: None (occurrence: None)
  Receive Date: 20070921
  Receipt Date: 20070917
  Transmission Date: 20080115
  Serious: Yes (Hospitalization)
  Sender: FDA-Public Use
  Company Number: 2005-12-0626

PATIENT
  Age: 75 Year
  Sex: Male

DRUGS (10)
  1. INTEGRILIN [Suspect]
     Indication: ACUTE CORONARY SYNDROME
     Dosage: 7 MG; ONCE; INBO; 12 ML; QH; INDRP
     Route: 040
     Dates: start: 20051128, end: 20051128
  2. HEPARIN SODIUM [Suspect]
     Indication: DRUG USE FOR UNKNOWN INDICATION
     Dosage: IV
     Route: 042
     Dates: start: 20051123, end: 20051126
  3. LOVENOX (CON.) [Concomitant]
  4. PLAVIX (CON.) [Concomitant]
  5. ACETYLSALICYLATE LYSINE (CON.) [Concomitant]
  6. NITRIDERM (CON.) [Concomitant]
  7. SOTALEX (CON.) [Concomitant]
  8. AMLOR (CON.) [Concomitant]
  9. FINASTERIDE (CON.) [Concomitant]
  10. TAHOR (CON.) [Concomitant]

REACTIONS (5)
  - DERMATITIS BULLOUS [None]
  - HAEMOPTYSIS [None]
  - PETECHIAE [None]
  - PYREXIA [None]
  - THROMBOCYTOPENIA [None]
